FAERS Safety Report 9146297 (Version 3)
Quarter: 2014Q1

REPORT INFORMATION
  Report Type: Report from Study
  Country: AU (occurrence: AU)
  Receive Date: 20130307
  Receipt Date: 20140124
  Transmission Date: 20141002
  Serious: Yes (Hospitalization)
  Sender: FDA-Public Use
  Company Number: AU-ASTRAZENECA-2013SE13967

PATIENT
  Age: 27622 Day
  Sex: Female

DRUGS (17)
  1. AZD6140 [Suspect]
     Indication: CORONARY ARTERY DISEASE
     Route: 048
     Dates: start: 20111031, end: 20130226
  2. AZD6140 [Suspect]
     Indication: CORONARY ARTERY DISEASE
     Route: 048
     Dates: start: 20130312, end: 20130703
  3. AZD6140 [Suspect]
     Indication: CORONARY ARTERY DISEASE
     Route: 048
     Dates: end: 20131231
  4. ASPIRIN [Suspect]
     Route: 048
     Dates: start: 20100123
  5. GLYCERYL TRINITRATE [Concomitant]
     Indication: MYOCARDIAL ISCHAEMIA
     Route: 060
  6. CODEINE PHOSPHATE [Concomitant]
     Indication: OSTEOARTHRITIS
     Route: 048
  7. DIAZEPAM [Concomitant]
     Indication: INSOMNIA
     Route: 048
  8. DOXYLAMINE SUCCIATE [Concomitant]
     Indication: INSOMNIA
     Route: 048
  9. ROSUVASTATIN [Concomitant]
     Indication: PROPHYLAXIS
     Route: 048
  10. RAMIPRIL [Concomitant]
     Indication: MYOCARDIAL ISCHAEMIA
     Route: 048
  11. FLEXIL [Concomitant]
     Indication: OSTEOARTHRITIS
     Route: 061
     Dates: start: 20120306
  12. FOSAMAX [Concomitant]
     Indication: OSTEOPOROSIS
     Route: 048
  13. PANADOL OSTEO [Concomitant]
     Indication: OSTEOARTHRITIS
     Dosage: 2-3 DAILY PRN
     Route: 048
     Dates: start: 20120306
  14. DILTIAZEM [Concomitant]
     Indication: MYOCARDIAL ISCHAEMIA
     Route: 048
  15. PARACETAMOL [Concomitant]
     Indication: PAIN
     Route: 048
  16. CODEINE [Concomitant]
     Indication: PAIN
     Route: 048
  17. DOXYLAMINE SUCCINATE [Concomitant]
     Indication: PAIN
     Route: 048

REACTIONS (1)
  - Gastrointestinal haemorrhage [Recovered/Resolved]
